FAERS Safety Report 8037403-2 (Version None)
Quarter: 2012Q1

REPORT INFORMATION
  Report Type: 
  Country: None (occurrence: None)
  Receive Date: 20120111
  Receipt Date: 20120110
  Transmission Date: 20120608
  Serious: Yes (Hospitalization)
  Sender: FDA-Public Use
  Company Number: BE-AMGEN-BELSP2012001753

PATIENT
  Age: 79 Year
  Sex: Female
  Weight: 40.4 kg

DRUGS (11)
  1. ALLOPURINOL [Concomitant]
     Indication: TUMOUR LYSIS SYNDROME
     Dosage: 300 MG, UNK
     Dates: start: 20110714
  2. COTRIM [Concomitant]
     Indication: ANTI-INFECTIVE THERAPY
     Dosage: 480 MG, UNK
     Route: 048
     Dates: start: 20110714
  3. ACYCLOVIR [Concomitant]
     Indication: ANTIVIRAL TREATMENT
     Dosage: 800 MG, UNK
     Route: 048
     Dates: start: 20110714, end: 20110723
  4. ARMODAFINIL [Concomitant]
     Indication: ANTIFUNGAL TREATMENT
     Dosage: 200 MG, UNK
     Route: 048
     Dates: start: 20110714
  5. NEUPOGEN [Suspect]
     Indication: DIFFUSE LARGE B-CELL LYMPHOMA
     Dosage: 6 MG, UNK
     Route: 058
     Dates: start: 20110718
  6. DOXORUBICIN HCL [Suspect]
     Indication: DIFFUSE LARGE B-CELL LYMPHOMA
     Dosage: 67.5 MG, UNK
     Route: 042
     Dates: start: 20110715
  7. VINCRISTINE [Suspect]
     Indication: DIFFUSE LARGE B-CELL LYMPHOMA
     Dosage: 1.89 MG, UNK
     Route: 042
     Dates: start: 20110715
  8. PREDNISONE [Suspect]
     Indication: DIFFUSE LARGE B-CELL LYMPHOMA
     Dosage: 320 MG, UNK
     Route: 048
     Dates: start: 20110715
  9. HYDROCORTISONE [Concomitant]
     Indication: ADRENAL INSUFFICIENCY
     Dosage: UNK
     Route: 048
     Dates: start: 20110725
  10. RITUXIMAB [Suspect]
     Indication: DIFFUSE LARGE B-CELL LYMPHOMA
     Dosage: 506.25 MG, UNK
     Route: 042
     Dates: start: 20110715
  11. CYCLOPHOSPHAMIDE [Suspect]
     Indication: DIFFUSE LARGE B-CELL LYMPHOMA
     Dosage: 1012.5 MG, UNK
     Route: 042
     Dates: start: 20110715

REACTIONS (2)
  - NAUSEA [None]
  - FEBRILE NEUTROPENIA [None]
